FAERS Safety Report 10047133 (Version 2)
Quarter: 2014Q1

REPORT INFORMATION
  Report Type: Spontaneous
  Country: US (occurrence: US)
  Receive Date: 20140331
  Receipt Date: 20140331
  Transmission Date: 20141002
  Serious: No
  Sender: FDA-Public Use
  Company Number: US-MYLANLABS-2013S1010876

PATIENT
  Age: 42 Year
  Sex: Male

DRUGS (2)
  1. FENTANYL TRANSDERMAL SYSTEM [Suspect]
     Indication: HEADACHE
     Dosage: Q72H
     Route: 062
     Dates: start: 201301
  2. NORCO [Concomitant]
     Indication: PAIN

REACTIONS (2)
  - Pruritus generalised [Not Recovered/Not Resolved]
  - Wrong technique in drug usage process [Not Recovered/Not Resolved]
